FAERS Safety Report 6610556-6 (Version None)
Quarter: 2010Q1

REPORT INFORMATION
  Report Type: 
  Country: None (occurrence: None)
  Receive Date: 20100302
  Receipt Date: 20100219
  Transmission Date: 20100710
  Serious: Yes (Other)
  Sender: FDA-Public Use
  Company Number: JP-PFIZER INC-2010006000

PATIENT
  Age: 70 Year
  Sex: Male
  Weight: 75 kg

DRUGS (4)
  1. CHAMPIX [Suspect]
     Indication: SMOKING CESSATION THERAPY
     Dosage: 0.5 MG, 1X/DAY
     Route: 048
     Dates: start: 20091209, end: 20091211
  2. CHAMPIX [Suspect]
     Dosage: 1 MG PER DAY
     Dates: start: 20091212, end: 20091215
  3. CHAMPIX [Suspect]
     Dosage: 2 MG PER DAY
     Dates: start: 20091216
  4. CHAMPIX [Suspect]
     Dosage: 1 MG PER DAY
     Dates: start: 20091222, end: 20100109

REACTIONS (6)
  - EXTRADURAL HAEMATOMA [None]
  - FALL [None]
  - HEADACHE [None]
  - INSOMNIA [None]
  - LOSS OF CONSCIOUSNESS [None]
  - TRANSIENT GLOBAL AMNESIA [None]
